FAERS Safety Report 20942799 (Version 1)
Quarter: 2022Q2

REPORT INFORMATION
  Report Type: Spontaneous
  Country: TW (occurrence: TW)
  Receive Date: 20220610
  Receipt Date: 20220610
  Transmission Date: 20220720
  Serious: Yes (Hospitalization, Other)
  Sender: FDA-Public Use
  Company Number: TW-MLMSERVICE-20180816-1338641-1

PATIENT
  Age: 87 Year
  Sex: Female
  Weight: 68.5 kg

DRUGS (16)
  1. IMIPRAMINE PAMOATE [Interacting]
     Active Substance: IMIPRAMINE PAMOATE
     Indication: Major depression
     Dosage: 25 MG, QD, HS, LONG TERM TREATMENT
     Route: 065
  2. IMIPRAMINE PAMOATE [Interacting]
     Active Substance: IMIPRAMINE PAMOATE
     Indication: Panic disorder
  3. SEROQUEL [Interacting]
     Active Substance: QUETIAPINE FUMARATE
     Indication: Major depression
     Dosage: HS
     Route: 065
  4. SEROQUEL [Interacting]
     Active Substance: QUETIAPINE FUMARATE
     Indication: Panic disorder
  5. FENTANYL [Interacting]
     Active Substance: FENTANYL
     Indication: General anaesthesia
     Dosage: 100 MICROGRAM, TOTAL
     Route: 042
  6. DESFLURANE [Interacting]
     Active Substance: DESFLURANE
     Indication: Maintenance of anaesthesia
     Dosage: UNK
     Route: 065
  7. PROPOFOL [Interacting]
     Active Substance: PROPOFOL
     Indication: General anaesthesia
     Dosage: 100 MG, TOTAL
     Route: 042
  8. CISATRACURIUM [Interacting]
     Active Substance: CISATRACURIUM
     Indication: Endotracheal intubation
     Dosage: 10 MG, TOTAL
     Route: 042
  9. SEVOFLURANE [Interacting]
     Active Substance: SEVOFLURANE
     Indication: Maintenance of anaesthesia
     Dosage: UNK
     Route: 065
  10. LIDOCAINE [Interacting]
     Active Substance: LIDOCAINE
     Indication: General anaesthesia
     Dosage: 50 MG, TOTAL
     Route: 042
  11. ALPRAZOLAM [Interacting]
     Active Substance: ALPRAZOLAM
     Indication: Major depression
     Dosage: 0.5 MG, BID
     Route: 065
  12. ALPRAZOLAM [Interacting]
     Active Substance: ALPRAZOLAM
     Indication: Panic disorder
  13. ESTAZOLAM [Interacting]
     Active Substance: ESTAZOLAM
     Indication: Major depression
     Dosage: 2 MG
     Route: 065
  14. ESTAZOLAM [Interacting]
     Active Substance: ESTAZOLAM
     Indication: Panic disorder
  15. PROPRANOLOL [Concomitant]
     Active Substance: PROPRANOLOL HYDROCHLORIDE
     Indication: Hypertension
     Dosage: 10 MG, BID,  HYPERTENSION WAS UNDER CONTROL WITH PROPRANOLOL 10 MG BID TREATMENT FOR 10 YEARS
     Route: 065
  16. OXYGEN [Concomitant]
     Active Substance: OXYGEN
     Indication: Product used for unknown indication
     Route: 065

REACTIONS (3)
  - Bradycardia [Recovered/Resolved]
  - Procedural hypotension [Recovered/Resolved]
  - Drug interaction [Unknown]
